FAERS Safety Report 16266560 (Version 2)
Quarter: 2019Q3

REPORT INFORMATION
  Report Type: Spontaneous
  Country: ES (occurrence: ES)
  Receive Date: 20190502
  Receipt Date: 20190722
  Transmission Date: 20191004
  Serious: Yes (Other)
  Sender: FDA-Public Use
  Company Number: ES-JNJFOC-20190443904

PATIENT
  Age: 71 Year
  Sex: Female

DRUGS (4)
  1. LEVETIRACETAM. [Concomitant]
     Active Substance: LEVETIRACETAM
     Route: 065
  2. FUROSEMIDE. [Concomitant]
     Active Substance: FUROSEMIDE
     Indication: CARDIAC FAILURE CONGESTIVE
     Route: 065
     Dates: start: 20180301
  3. BISOPROLOL [Concomitant]
     Active Substance: BISOPROLOL
     Indication: CARDIAC FAILURE CONGESTIVE
     Route: 065
     Dates: start: 20180301
  4. XARELTO [Suspect]
     Active Substance: RIVAROXABAN
     Indication: ATRIAL FIBRILLATION
     Route: 048
     Dates: start: 20180501, end: 20190122

REACTIONS (14)
  - Urinary incontinence [Recovered/Resolved]
  - Subarachnoid haemorrhage [Recovered/Resolved]
  - Fall [Recovered/Resolved]
  - Pupils unequal [Recovered/Resolved]
  - Subdural haematoma evacuation [Recovered/Resolved]
  - Diaphragmatic paralysis [Recovered/Resolved]
  - Memory impairment [Recovered/Resolved]
  - Confusional state [Recovered/Resolved]
  - Catarrh [Recovered/Resolved]
  - Wound [Recovered/Resolved]
  - Balance disorder [Recovered/Resolved]
  - Craniocerebral injury [Recovered/Resolved]
  - Arrhythmia [Recovered/Resolved]
  - Ciliary body disorder [Recovered/Resolved]

NARRATIVE: CASE EVENT DATE: 20190118
